FAERS Safety Report 16435128 (Version 2)
Quarter: 2019Q3

REPORT INFORMATION
  Report Type: Spontaneous
  Country: US (occurrence: US)
  Receive Date: 20190614
  Receipt Date: 20190703
  Transmission Date: 20191004
  Serious: Yes (Hospitalization, Other)
  Sender: FDA-Public Use
  Company Number: US-SAOL THERAPEUTICS-2019SAO00230

PATIENT
  Age: 19 Year
  Sex: Male
  Weight: 48.9 kg

DRUGS (2)
  1. LIORESAL [Suspect]
     Active Substance: BACLOFEN
     Dosage: 368 ?G, \DAY FLEX
     Route: 037
     Dates: start: 20190426
  2. LIORESAL [Suspect]
     Active Substance: BACLOFEN
     Indication: MUSCLE SPASTICITY
     Dosage: 342 ?G, \DAY FLEX
     Route: 037
     Dates: start: 2004, end: 20190426

REACTIONS (8)
  - Hyperhidrosis [Unknown]
  - Irritability [Unknown]
  - Pain [Unknown]
  - Complication associated with device [Recovered/Resolved]
  - Drug withdrawal syndrome [Unknown]
  - Constipation [Unknown]
  - Spinal fusion surgery [Recovered/Resolved]
  - Implant site extravasation [Unknown]

NARRATIVE: CASE EVENT DATE: 201905
